FAERS Safety Report 6196215-5 (Version None)
Quarter: 2009Q2

REPORT INFORMATION
  Report Type: 
  Country: None (occurrence: None)
  Receive Date: 20090520
  Receipt Date: 20090512
  Transmission Date: 20091009
  Serious: Yes (Other)
  Sender: FDA-Public Use
  Company Number: US-AVENTIS-200817548US

PATIENT
  Sex: Female
  Weight: 68.9 kg

DRUGS (6)
  1. KETEK [Suspect]
     Dosage: DOSE: UNK
     Dates: start: 20060101
  2. ATENOLOL [Concomitant]
     Route: 048
  3. ACIPHEX [Concomitant]
     Route: 048
  4. VITAMINS NOS [Concomitant]
     Dosage: DOSE: UNK
  5. CLIMARA PRO [Concomitant]
     Dosage: DOSE: UNK
  6. ALCOHOL [Concomitant]
     Dosage: DOSE: UNK

REACTIONS (9)
  - BLOOD ALKALINE PHOSPHATASE INCREASED [None]
  - BLOOD BILIRUBIN INCREASED [None]
  - CARDIOMEGALY [None]
  - CHEST PAIN [None]
  - DIARRHOEA [None]
  - HEPATITIS VIRAL [None]
  - LIVER FUNCTION TEST ABNORMAL [None]
  - NAUSEA [None]
  - VOMITING [None]
